FAERS Safety Report 23381513 (Version 2)
Quarter: 2024Q1

REPORT INFORMATION
  Report Type: Spontaneous
  Country: JP (occurrence: JP)
  Receive Date: 20240109
  Receipt Date: 20240215
  Transmission Date: 20240409
  Serious: Yes (Hospitalization, Other)
  Sender: FDA-Public Use
  Company Number: None

PATIENT
  Age: 72 Year
  Sex: Male

DRUGS (4)
  1. PREDNISOLONE [Suspect]
     Active Substance: PREDNISOLONE
     Indication: Hashimoto^s encephalopathy
     Dosage: 50 MG PER DAY (1 MG/KG/DAY) (SCHEDULED TO BE ADMINISTERED FOR 1 MONTH)
     Route: 048
  2. PREDNISOLONE [Suspect]
     Active Substance: PREDNISOLONE
     Dosage: UNK (GRADUALLY DECREASED AT A RATE OF 5 MG/ 2 WEEKS AND THEN TAPERED OFF)
     Route: 048
  3. METHYLPREDNISOLONE [Suspect]
     Active Substance: METHYLPREDNISOLONE
     Indication: Hashimoto^s encephalopathy
     Dosage: 1 GRAM PER DAY (HIGH-DOSE, FIRST COURSE STARTED ON DAY 13 OF HOSPITALIZATION)
     Route: 042
  4. METHYLPREDNISOLONE [Suspect]
     Active Substance: METHYLPREDNISOLONE
     Dosage: 1 GRAM PER DAY (HIGH-DOSE, SECOND COURSE STARTED ON DAY 33 OF HOSPITALISATION)
     Route: 042

REACTIONS (4)
  - Aggression [Unknown]
  - Irritability [Unknown]
  - Psychotic disorder [Unknown]
  - Off label use [Unknown]
